FAERS Safety Report 11492068 (Version 1)
Quarter: 2015Q3

REPORT INFORMATION
  Report Type: Spontaneous
  Country: US (occurrence: US)
  Receive Date: 20150910
  Receipt Date: 20150910
  Transmission Date: 20151125
  Serious: Yes (Other)
  Sender: FDA-Public Use
  Company Number: US-BAYER-2015-403910

PATIENT
  Age: 72 Year
  Sex: Female
  Weight: 58.96 kg

DRUGS (1)
  1. DR. SCHOLLS ONE STEP CORN REMOVERS [Suspect]
     Active Substance: SALICYLIC ACID
     Indication: SKIN LESION EXCISION
     Dosage: UNK 1 DOSE AS USED
     Route: 061
     Dates: start: 20150809, end: 20150814

REACTIONS (4)
  - Dry skin [None]
  - Application site discharge [None]
  - Wound infection [None]
  - Pain in extremity [None]

NARRATIVE: CASE EVENT DATE: 20150814
